FAERS Safety Report 4847047-9 (Version None)
Quarter: 2005Q4

REPORT INFORMATION
  Report Type: 
  Country: None (occurrence: None)
  Receive Date: 20051205
  Receipt Date: 20051124
  Transmission Date: 20060501
  Serious: Yes (Hospitalization)
  Sender: FDA-Public Use
  Company Number: 2005-10-0562

PATIENT
  Age: 28 Year
  Sex: Male

DRUGS (6)
  1. AERIUS (DESLORATADINE)TABLETS [Suspect]
     Indication: HYPERSENSITIVITY
     Dosage: *1 QD ORAL
     Route: 048
     Dates: start: 20041001, end: 20041001
  2. AERIUS (DESLORATADINE)TABLETS [Suspect]
     Indication: HYPERSENSITIVITY
     Dosage: *1 QD ORAL
     Route: 048
     Dates: start: 20041001, end: 20050101
  3. AERIUS (DESLORATADINE)TABLETS [Suspect]
     Indication: HYPERSENSITIVITY
     Dosage: *1 QD ORAL
     Route: 048
     Dates: start: 20050101, end: 20050101
  4. DEXTROMETHORPHAN HYDROBROMIDE [Concomitant]
  5. OMEPRAZOLE [Concomitant]
  6. ANTI-INFLAMMATORY AGENT (NOS) [Concomitant]

REACTIONS (2)
  - CYTOLYTIC HEPATITIS [None]
  - HEPATITIS CHOLESTATIC [None]
